FAERS Safety Report 4323675-4 (Version None)
Quarter: 2004Q1

REPORT INFORMATION
  Report Type: 
  Country: None (occurrence: None)
  Receive Date: 20040323
  Receipt Date: 20040309
  Transmission Date: 20041129
  Serious: Yes (Hospitalization)
  Sender: FDA-Public Use
  Company Number: DE-JNJFOC-20040300230

PATIENT
  Age: 85 Year
  Sex: Male

DRUGS (2)
  1. GALANTAMINE (GALANTAMINE) TABLETS [Suspect]
     Indication: DEMENTIA
     Dosage: SEE IMAGE
     Route: 048
     Dates: start: 20031001, end: 20031027
  2. GALANTAMINE (GALANTAMINE) TABLETS [Suspect]
     Indication: DEMENTIA
     Dosage: SEE IMAGE
     Route: 048
     Dates: start: 20031028

REACTIONS (12)
  - BLOOD CREATINE INCREASED [None]
  - BLOOD CREATINE PHOSPHOKINASE INCREASED [None]
  - BLOOD GLUCOSE INCREASED [None]
  - CARDIOMEGALY [None]
  - CIRCADIAN RHYTHM SLEEP DISORDER [None]
  - DELIRIUM [None]
  - DISORIENTATION [None]
  - FALL [None]
  - HYPERTENSION [None]
  - PROTHROMBIN TIME PROLONGED [None]
  - PULMONARY OEDEMA [None]
  - WHITE BLOOD CELL COUNT INCREASED [None]
